FAERS Safety Report 8356154 (Version 2)
Quarter: 2013Q2

REPORT INFORMATION
  Report Type: Spontaneous
  Country: US (occurrence: None)
  Receive Date: 20111221
  Receipt Date: 20121227
  Transmission Date: 20140414
  Serious: Yes (Hospitalization)
  Sender: FDA-Public Use
  Company Number: PHHY2011US53552

PATIENT
  Age: 32 Year
  Sex: Male
  Weight: 68.1 kg

DRUGS (4)
  1. EXJADE [Suspect]
     Indication: SICKLE CELL ANAEMIA
     Route: 048
     Dates: start: 20110606
  2. EXJADE [Suspect]
     Route: 048
     Dates: start: 20110606
  3. FOLIC ACID [Concomitant]
  4. ACETAMINOPHEN W/ HYDROCODONE (HYDROCODONE, PARACETAMOL) TABLET [Concomitant]

REACTIONS (2)
  - SICKLE CELL ANAEMIA WITH CRISIS [None]
  - ABDOMINAL PAIN UPPER [None]
